FAERS Safety Report 7871986-8 (Version None)
Quarter: 2011Q4

REPORT INFORMATION
  Report Type: 
  Country: None (occurrence: None)
  Receive Date: 20111029
  Receipt Date: 20110311
  Transmission Date: 20120403
  Serious: No
  Sender: FDA-Public Use
  Company Number: US-AMGEN-USASP2011008789

PATIENT
  Age: 64 Year
  Sex: Male

DRUGS (1)
  1. ENBREL [Suspect]
     Indication: ANKYLOSING SPONDYLITIS
     Dates: start: 20050101

REACTIONS (6)
  - DENTAL CARE [None]
  - COLONIC POLYP [None]
  - CATARACT [None]
  - BLOOD PRESSURE INCREASED [None]
  - VIRAL INFECTION [None]
  - MALAISE [None]
